FAERS Safety Report 16300289 (Version 1)
Quarter: 2019Q2

REPORT INFORMATION
  Report Type: Spontaneous
  Country: GB (occurrence: GB)
  Receive Date: 20190510
  Receipt Date: 20190510
  Transmission Date: 20190711
  Serious: Yes (Death, Disabling)
  Sender: FDA-Public Use
  Company Number: GB-TEVA-2019-GB-1047795

PATIENT
  Age: 60 Year
  Sex: Male
  Weight: 70 kg

DRUGS (14)
  1. CETIRIZINE [Concomitant]
     Active Substance: CETIRIZINE HYDROCHLORIDE
     Dosage: 1MG/ML
  2. CARBOCISTEINE [Concomitant]
     Active Substance: CARBOCYSTEINE
     Dosage: 250MG/5ML
  3. SPIRONOLACTONE. [Concomitant]
     Active Substance: SPIRONOLACTONE
     Dosage: 25 MILLIGRAM
  4. MELATONIN [Concomitant]
     Active Substance: MELATONIN
     Dosage: 2MG/5ML
  5. PHENOXYMETHYLPENICILLIN [Concomitant]
     Active Substance: PENICILLIN V
     Dosage: 250MG/5ML
  6. COLECALCIFEROL [Concomitant]
     Active Substance: CHOLECALCIFEROL
  7. CARBAMAZEPINE. [Concomitant]
     Active Substance: CARBAMAZEPINE
  8. ATORVASTATIN [Concomitant]
     Active Substance: ATORVASTATIN
     Dosage: 40 MILLIGRAM
  9. BISOPROLOL [Concomitant]
     Active Substance: BISOPROLOL
     Dosage: 1.25 MILLIGRAM
  10. HYDROXOCOBALAMIN [Concomitant]
     Active Substance: HYDROXOCOBALAMIN
     Dosage: 1MG/ML
  11. ACETYLSALICYLIC ACID [Concomitant]
     Active Substance: ASPIRIN
     Dosage: 75 MILLIGRAM
  12. AMANTADINE HYDROCHLORIDE. [Suspect]
     Active Substance: AMANTADINE HYDROCHLORIDE
     Indication: NERVOUS SYSTEM DISORDER
     Dosage: 200 MILLIGRAM FOR EVERY 1 DAYS 50MG/5ML
     Dates: start: 20180418
  13. HYPROMELLOSE [Concomitant]
     Active Substance: HYPROMELLOSES
  14. LANSOPRAZOLE. [Concomitant]
     Active Substance: LANSOPRAZOLE
     Dosage: 30 MILLIGRAM

REACTIONS (7)
  - Death [Fatal]
  - Hypotension [Fatal]
  - Skin discolouration [Fatal]
  - Oxygen saturation decreased [Fatal]
  - Pupil fixed [Fatal]
  - Secretion discharge [Fatal]
  - Hyperhidrosis [Fatal]

NARRATIVE: CASE EVENT DATE: 20180924
